FAERS Safety Report 17362248 (Version 1)
Quarter: 2020Q1

REPORT INFORMATION
  Report Type: Report from Study
  Country: RU (occurrence: RU)
  Receive Date: 20200203
  Receipt Date: 20200203
  Transmission Date: 20200409
  Serious: Yes (Other)
  Sender: FDA-Public Use
  Company Number: RU-JNJFOC-20200134513

PATIENT
  Age: 30 Year
  Sex: Female

DRUGS (1)
  1. RIVAROXABAN [Suspect]
     Active Substance: RIVAROXABAN
     Indication: THROMBOPHLEBITIS
     Dosage: UNK
     Route: 065

REACTIONS (3)
  - Blood urine present [Unknown]
  - Off label use [Unknown]
  - Product use in unapproved indication [Unknown]
